FAERS Safety Report 8318664-9 (Version None)
Quarter: 2012Q1

REPORT INFORMATION
  Report Type: 
  Country: None (occurrence: None)
  Receive Date: 20120315
  Receipt Date: 20110401
  Transmission Date: 20120608
  Serious: Yes (Other)
  Sender: FDA-Public Use
  Company Number: PHHY2011US15664

PATIENT
  Age: 68 Year
  Sex: Male

DRUGS (7)
  1. ACETAMINOPHEN [Concomitant]
  2. VITAMIN D [Concomitant]
  3. GILENYA [Suspect]
     Indication: MULTIPLE SCLEROSIS
     Dosage: 0.5 MG, QD, ORAL
     Route: 048
     Dates: start: 20110114, end: 20110219
  4. PAROXETINE HCL [Concomitant]
  5. COUMADIN [Concomitant]
  6. AVONEX [Concomitant]
  7. BACLOFEN [Concomitant]

REACTIONS (6)
  - EYE PAIN [None]
  - VISION BLURRED [None]
  - VISUAL IMPAIRMENT [None]
  - VISUAL ACUITY REDUCED [None]
  - PHOTOPHOBIA [None]
  - MACULAR OEDEMA [None]
